FAERS Safety Report 20329673 (Version 2)
Quarter: 2022Q1

REPORT INFORMATION
  Report Type: Spontaneous
  Country: US (occurrence: None)
  Receive Date: 20220112
  Receipt Date: 20220209
  Transmission Date: 20220423
  Serious: No
  Sender: FDA-Public Use
  Company Number: 2021A907593

PATIENT
  Sex: Female
  Weight: 61.2 kg

DRUGS (1)
  1. BUDESONIDE\FORMOTEROL\GLYCOPYRRONIUM [Suspect]
     Active Substance: BUDESONIDE\FORMOTEROL\GLYCOPYRRONIUM
     Indication: Chronic obstructive pulmonary disease
     Dosage: 160/9/4.8 MCG; TWO TIMES A DAY
     Route: 055
     Dates: start: 20210914

REACTIONS (7)
  - Muscle spasms [Unknown]
  - Hypersensitivity [Unknown]
  - Dyspnoea [Unknown]
  - Product dose omission issue [Unknown]
  - Product dose omission in error [Unknown]
  - Wrong technique in product usage process [Unknown]
  - Product packaging quantity issue [Unknown]
